FAERS Safety Report 23938134 (Version 1)
Quarter: 2024Q2

REPORT INFORMATION
  Report Type: Spontaneous
  Country: US (occurrence: US)
  Receive Date: 20240604
  Receipt Date: 20240604
  Transmission Date: 20240716
  Serious: No
  Sender: FDA-Public Use
  Company Number: US-EXELA PHARMA SCIENCES, LLC-2024EXL00007

PATIENT

DRUGS (1)
  1. EPHEDRINE [Suspect]
     Active Substance: EPHEDRINE

REACTIONS (1)
  - Drug ineffective [Unknown]
